FAERS Safety Report 8258795-5 (Version None)
Quarter: 2012Q1

REPORT INFORMATION
  Report Type: 
  Country: None (occurrence: None)
  Receive Date: 20120322
  Receipt Date: 20120203
  Transmission Date: 20120608
  Serious: Yes (Death)
  Sender: FDA-Public Use
  Company Number: UTC-015226

PATIENT
  Age: 82 Year
  Sex: Female
  Weight: 63.6 kg

DRUGS (5)
  1. TRACLEER [Concomitant]
  2. TYVASO [Suspect]
     Indication: COR PULMONALE CHRONIC
     Dosage: 18-72 MICROGRAMS (4 IN 1 D),INHALATION
     Route: 055
     Dates: start: 20091112
  3. DIURETICS (DIURETICS) [Concomitant]
  4. COUMADIN [Concomitant]
  5. ADCIRCA [Concomitant]

REACTIONS (1)
  - NEOPLASM MALIGNANT [None]
